FAERS Safety Report 5195142-X (Version None)
Quarter: 2006Q4

REPORT INFORMATION
  Report Type: 
  Country: None (occurrence: None)
  Receive Date: 20061229
  Receipt Date: 20060120
  Transmission Date: 20070319
  Serious: Yes (Death, Other)
  Sender: FDA-Public Use
  Company Number: US-PFIZER INC-2006012129

PATIENT
  Sex: Female

DRUGS (2)
  1. CELEBREX [Suspect]
     Route: 048
     Dates: start: 20040902, end: 20041008
  2. VIOXX [Suspect]
     Route: 048
     Dates: start: 20040424, end: 20040924

REACTIONS (1)
  - CEREBROVASCULAR ACCIDENT [None]
